FAERS Safety Report 9008691 (Version 3)
Quarter: 2013Q2

REPORT INFORMATION
  Report Type: Spontaneous
  Country: US (occurrence: US)
  Receive Date: 20130111
  Receipt Date: 20130427
  Transmission Date: 20140414
  Serious: Yes (Hospitalization, Other)
  Sender: FDA-Public Use
  Company Number: US-ROCHE-718643

PATIENT
  Age: 32 Year
  Sex: Male
  Weight: 81.6 kg

DRUGS (1)
  1. ACCUTANE [Suspect]
     Indication: ACNE
     Dosage: 20 AND 40 MG
     Route: 065
     Dates: start: 1998, end: 2000

REACTIONS (5)
  - Colitis ulcerative [Unknown]
  - Gastrointestinal injury [Unknown]
  - Depression [Unknown]
  - Anal fissure [Unknown]
  - Irritable bowel syndrome [Recovered/Resolved]
